FAERS Safety Report 6419240-5 (Version None)
Quarter: 2009Q4

REPORT INFORMATION
  Report Type: 
  Country: None (occurrence: None)
  Receive Date: 20091029
  Receipt Date: 20091026
  Transmission Date: 20100525
  Serious: Yes (Hospitalization)
  Sender: FDA-Public Use
  Company Number: GB-BRISTOL-MYERS SQUIBB COMPANY-14460463

PATIENT
  Age: 28 Year
  Sex: Female

DRUGS (2)
  1. CETUXIMAB [Suspect]
     Dates: start: 20081224
  2. IRINOTECAN HCL [Suspect]
     Dates: start: 20081222

REACTIONS (3)
  - CONVULSION [None]
  - ENCEPHALOPATHY [None]
  - HEADACHE [None]
